FAERS Safety Report 25067788 (Version 1)
Quarter: 2025Q1

REPORT INFORMATION
  Report Type: Spontaneous
  Country: US (occurrence: None)
  Receive Date: 20250311
  Receipt Date: 20250311
  Transmission Date: 20250408
  Serious: Yes (Death)
  Sender: FDA-CTU
  Company Number: None

PATIENT
  Age: 79 Year
  Sex: Male

DRUGS (9)
  1. LENALIDOMIDE [Suspect]
     Active Substance: LENALIDOMIDE
     Indication: Plasma cell myeloma
     Route: 048
     Dates: start: 20250117, end: 20250302
  2. ACYCLOVIR [Concomitant]
     Active Substance: ACYCLOVIR
  3. ALBUTEROL [Concomitant]
     Active Substance: ALBUTEROL
  4. ALLERGY RELI [Concomitant]
  5. ASPIRIN [Concomitant]
     Active Substance: ASPIRIN
  6. CALCITONIN [Concomitant]
     Active Substance: CALCITONIN
  7. CALCIUM [Concomitant]
     Active Substance: CALCIUM
  8. CALCIUM HCL [Concomitant]
  9. FLOMAX [Concomitant]
     Active Substance: TAMSULOSIN HYDROCHLORIDE

REACTIONS (1)
  - Death [None]

NARRATIVE: CASE EVENT DATE: 20250302
